FAERS Safety Report 11595418 (Version 1)
Quarter: 2015Q4

REPORT INFORMATION
  Report Type: Spontaneous
  Country: US (occurrence: None)
  Receive Date: 20151002
  Receipt Date: 20151002
  Transmission Date: 20160304
  Serious: Yes (Death, Hospitalization)
  Sender: FDA-Public Use
  Company Number: 2015PL000198

PATIENT
  Sex: Male

DRUGS (15)
  1. IRBESARTAN. [Concomitant]
     Active Substance: IRBESARTAN
  2. AMLODIPINE [Concomitant]
     Active Substance: AMLODIPINE BESYLATE
  3. MECLIZINE [Concomitant]
     Active Substance: MECLIZINE\MECLIZINE HYDROCHLORIDE
  4. FEXOFENADINE [Concomitant]
     Active Substance: FEXOFENADINE\FEXOFENADINE HYDROCHLORIDE
  5. CYCLOBENZAPRINE [Concomitant]
     Active Substance: CYCLOBENZAPRINE
  6. ALBUTEROL (SALBUTAMOL) [Concomitant]
     Active Substance: ALBUTEROL
  7. AZELASTINE [Concomitant]
     Active Substance: AZELASTINE
  8. GLYBURIDE (GLIBENCLAMIDE) [Concomitant]
     Active Substance: GLYBURIDE
  9. SIMVASTATIN. [Concomitant]
     Active Substance: SIMVASTATIN
  10. HYDROCOCONE/ACETAMINOPHEN (HYDROCODONE BITARTRATE, PARACETAMOL) [Concomitant]
  11. ALLOPURINOL (ALLOPURINOL) TABLET [Suspect]
     Active Substance: ALLOPURINOL
     Indication: GOUT
     Route: 048
  12. FLUTICASONE [Concomitant]
     Active Substance: FLUTICASONE\FLUTICASONE PROPIONATE
  13. MONTELUKAST [Concomitant]
     Active Substance: MONTELUKAST SODIUM
  14. TRIAMTERENE AND HYDROCHLOROTHIZIDE (HYDROCHLOROTHIZIDE, TRIAMTEREME) [Concomitant]
  15. TERAZOSIN [Concomitant]
     Active Substance: TERAZOSIN\TERAZOSIN HYDROCHLORIDE

REACTIONS (21)
  - Wheezing [None]
  - Decreased appetite [None]
  - Hepatitis [None]
  - Hypophagia [None]
  - Hypotension [None]
  - Asthenia [None]
  - Acute kidney injury [None]
  - Chills [None]
  - Dysgeusia [None]
  - Malaise [None]
  - Cerebrovascular accident [None]
  - Nausea [None]
  - Diarrhoea [None]
  - Shock [None]
  - Drug reaction with eosinophilia and systemic symptoms [None]
  - Dehydration [None]
  - Leukocytosis [None]
  - Vasculitis [None]
  - Dysuria [None]
  - Respiratory distress [None]
  - Respiratory arrest [None]
